FAERS Safety Report 13648744 (Version 1)
Quarter: 2017Q2

REPORT INFORMATION
  Report Type: Spontaneous
  Country: US (occurrence: US)
  Receive Date: 20170613
  Receipt Date: 20170613
  Transmission Date: 20170830
  Serious: No
  Sender: FDA-Public Use
  Company Number: US-ABBVIE-16P-163-1723058-00

PATIENT
  Age: 70 Year
  Sex: Male

DRUGS (2)
  1. K-TAB [Suspect]
     Active Substance: POTASSIUM CHLORIDE
     Indication: PRODUCT USED FOR UNKNOWN INDICATION
     Route: 048
     Dates: start: 201507
  2. OMEPRAZOLE. [Concomitant]
     Active Substance: OMEPRAZOLE
     Indication: PRODUCT USED FOR UNKNOWN INDICATION

REACTIONS (2)
  - Medication residue present [Not Recovered/Not Resolved]
  - Medication residue present [Not Recovered/Not Resolved]

NARRATIVE: CASE EVENT DATE: 201608
